FAERS Safety Report 9240174 (Version 1)
Quarter: 2013Q2

REPORT INFORMATION
  Report Type: Spontaneous
  Country: US (occurrence: US)
  Receive Date: 20130418
  Receipt Date: 20130418
  Transmission Date: 20140414
  Serious: Yes (Hospitalization)
  Sender: FDA-Public Use
  Company Number: US-BRISTOL-MYERS SQUIBB COMPANY-18770347

PATIENT
  Age: 8 Year
  Sex: Male

DRUGS (4)
  1. ABILIFY [Suspect]
     Dosage: AT 8 AM
     Route: 048
     Dates: start: 20130404, end: 20130405
  2. CLONIDINE [Suspect]
     Dates: end: 20130403
  3. MIRTAZAPINE [Concomitant]
  4. GUANFACINE [Concomitant]

REACTIONS (6)
  - Heart rate decreased [Unknown]
  - Paraesthesia [Not Recovered/Not Resolved]
  - Dysphagia [Not Recovered/Not Resolved]
  - Mastication disorder [Not Recovered/Not Resolved]
  - Tremor [Unknown]
  - Foaming at mouth [Unknown]
